FAERS Safety Report 8731857 (Version 3)
Quarter: 2013Q1

REPORT INFORMATION
  Report Type: Spontaneous
  Country: US (occurrence: US)
  Receive Date: 20120820
  Receipt Date: 20130305
  Transmission Date: 20140127
  Serious: Yes (Other)
  Sender: FDA-Public Use
  Company Number: US-US-EMD SERONO, INC.-7154264

PATIENT
  Age: 58 Year
  Sex: Female
  Weight: 73 kg

DRUGS (6)
  1. REBIF [Suspect]
     Indication: PRODUCT USED FOR UNKNOWN INDICATION
     Route: 058
     Dates: start: 20100418, end: 20120208
  2. REBIF [Suspect]
     Route: 058
  3. EFFEXOR [Concomitant]
     Indication: DEPRESSION
     Dates: start: 2009
  4. NAPROXEN SODIUM [Concomitant]
     Indication: BACK PAIN
  5. TEGRETOL [Concomitant]
     Indication: CONVULSION
  6. ARICEPT [Concomitant]
     Indication: MEMORY IMPAIRMENT

REACTIONS (4)
  - Lumbar spinal stenosis [Unknown]
  - Suicidal ideation [Unknown]
  - Depression [Unknown]
  - Nasopharyngitis [Recovered/Resolved]
